FAERS Safety Report 11302833 (Version 1)
Quarter: 2015Q3

REPORT INFORMATION
  Report Type: Spontaneous
  Country: US (occurrence: None)
  Receive Date: 20150723
  Receipt Date: 20150723
  Transmission Date: 20151125
  Serious: No
  Sender: FDA-Public Use
  Company Number: None

PATIENT
  Age: 54 Year
  Sex: Female
  Weight: 81.65 kg

DRUGS (6)
  1. VITAMIN [Concomitant]
     Active Substance: VITAMINS
  2. CALCIUM [Concomitant]
     Active Substance: CALCIUM
  3. HBP MEDS [Concomitant]
  4. ASPRIN [Concomitant]
     Active Substance: ASPIRIN
  5. MIRVASO [Suspect]
     Active Substance: BRIMONIDINE TARTRATE
     Indication: ROSACEA
     Dosage: APPLIED TO A SURFACE, USUALLY THE SKIN
     Route: 061
     Dates: start: 20150401, end: 20150721
  6. WELLBUTRIN [Concomitant]
     Active Substance: BUPROPION HYDROCHLORIDE

REACTIONS (5)
  - Nausea [None]
  - Erythema [None]
  - Hot flush [None]
  - Middle insomnia [None]
  - Palpitations [None]

NARRATIVE: CASE EVENT DATE: 20150721
